FAERS Safety Report 5144116-3 (Version None)
Quarter: 2006Q4

REPORT INFORMATION
  Report Type: 
  Country: None (occurrence: None)
  Receive Date: 20061106
  Receipt Date: 20060517
  Transmission Date: 20070319
  Serious: No
  Sender: FDA-Public Use
  Company Number: US-GLAXOSMITHKLINE-A0606057A

PATIENT
  Age: 19 Month
  Sex: Male

DRUGS (1)
  1. AMOXICILLIN [Suspect]
     Indication: EAR INFECTION
     Dosage: 1TSP TWICE PER DAY
     Route: 048
     Dates: start: 20060516, end: 20060516

REACTIONS (3)
  - DIARRHOEA [None]
  - MEDICATION ERROR [None]
  - RASH [None]
